FAERS Safety Report 8521067-5 (Version None)
Quarter: 2012Q3

REPORT INFORMATION
  Report Type: 
  Country: None (occurrence: None)
  Receive Date: 20120719
  Receipt Date: 20120713
  Transmission Date: 20120928
  Serious: Yes (Hospitalization)
  Sender: FDA-Public Use
  Company Number: US-ROCHE-1088653

PATIENT
  Sex: Female
  Weight: 133 kg

DRUGS (3)
  1. PEGASYS [Suspect]
     Indication: HEPATITIS C
     Dosage: MOST RECENT DOSE OF 180 MCG ON 09/JUL/2012
     Dates: start: 20120429
  2. COPEGUS [Suspect]
     Indication: HEPATITIS C
     Dosage: MOST RECENT DOSE OF 600 MG ON 09/JUL/2012
     Dates: start: 20120429
  3. TELAPREVIR [Suspect]
     Indication: HEPATITIS C
     Dosage: MOST RECENT DOSE OF 2250 MG ON 09/JUL/2012
     Dates: start: 20120429

REACTIONS (1)
  - ASTHMA [None]
